FAERS Safety Report 24611900 (Version 1)
Quarter: 2024Q4

REPORT INFORMATION
  Report Type: Spontaneous
  Country: DE (occurrence: DE)
  Receive Date: 20241113
  Receipt Date: 20241113
  Transmission Date: 20250115
  Serious: Yes (Other)
  Sender: ORGANON
  Company Number: DE-TORRENT-00027565

PATIENT
  Sex: Female

DRUGS (1)
  1. RIZATRIPTAN BENZOATE [Suspect]
     Active Substance: RIZATRIPTAN BENZOATE
     Indication: Product used for unknown indication
     Dosage: UNKNOWN

REACTIONS (3)
  - Loss of consciousness [Unknown]
  - Nausea [Unknown]
  - Somnolence [Unknown]
